FAERS Safety Report 20125835 (Version 1)
Quarter: 2021Q4

REPORT INFORMATION
  Report Type: Spontaneous
  Country: US (occurrence: None)
  Receive Date: 20211126
  Receipt Date: 20211126
  Transmission Date: 20220303
  Serious: Yes (Death)
  Sender: FDA-Public Use
  Company Number: None

PATIENT
  Age: 69 Year
  Sex: Male

DRUGS (2)
  1. REVLIMID [Suspect]
     Active Substance: LENALIDOMIDE
     Indication: Peripheral arterial occlusive disease
     Dosage: FREQUENCY : DAILY;?
     Route: 048
     Dates: start: 20160216, end: 20160331
  2. REVLIMID [Suspect]
     Active Substance: LENALIDOMIDE
     Indication: Plasma cell myeloma

REACTIONS (2)
  - Interstitial lung disease [None]
  - Therapy cessation [None]

NARRATIVE: CASE EVENT DATE: 20160525
